FAERS Safety Report 11741516 (Version 2)
Quarter: 2015Q4

REPORT INFORMATION
  Report Type: Report from Study
  Country: KH (occurrence: KH)
  Receive Date: 20151116
  Receipt Date: 20151120
  Transmission Date: 20160304
  Serious: Yes (Death, Other)
  Sender: FDA-Public Use
  Company Number: PHHY2015KH147563

PATIENT
  Sex: Female

DRUGS (1)
  1. GLIVEC [Suspect]
     Active Substance: IMATINIB MESYLATE
     Indication: ACUTE LYMPHOCYTIC LEUKAEMIA
     Dosage: 600 MG
     Route: 065

REACTIONS (4)
  - Bone marrow failure [Fatal]
  - Malignant neoplasm progression [Unknown]
  - Acute myeloid leukaemia [Fatal]
  - Acute lymphocytic leukaemia [Unknown]
